FAERS Safety Report 7332751-3 (Version None)
Quarter: 2011Q1

REPORT INFORMATION
  Report Type: 
  Country: None (occurrence: None)
  Receive Date: 20110304
  Receipt Date: 20110224
  Transmission Date: 20110831
  Serious: Yes (Hospitalization)
  Sender: FDA-Public Use
  Company Number: SE-ASTRAZENECA-2011SE10380

PATIENT
  Age: 44 Year
  Sex: Female

DRUGS (24)
  1. VIVAGLOBIN SOLUTION [Concomitant]
     Dosage: 160 MG/ML
  2. TRAMADOL HCL [Concomitant]
  3. METOLAZON ABCUR [Concomitant]
  4. PREDNISOLONE [Concomitant]
  5. OFTAGEL [Concomitant]
  6. ACETYLCYSTEINE [Concomitant]
  7. FURIX [Suspect]
     Route: 048
  8. FOSAMAX [Concomitant]
  9. IDEOS [Concomitant]
     Dosage: 500 MG/ 400 IE
  10. INNOVAIR PRESSURISED INHALATION [Concomitant]
     Dosage: 100/6 MIKROGRAM PER
     Route: 055
  11. ARTELAC [Concomitant]
  12. ATACAND [Suspect]
     Route: 048
     Dates: end: 20110127
  13. FURIX [Suspect]
     Route: 048
  14. DETRUSITOL SR [Concomitant]
  15. CLOPIDOGREL [Concomitant]
  16. CEFADROXIL MYLAN [Concomitant]
  17. CYMBALTA [Concomitant]
  18. OMEPRAZOLE [Concomitant]
  19. LIPITOR [Concomitant]
  20. ACETAMINOPHEN [Concomitant]
  21. XALATAN [Concomitant]
     Dosage: 50 MIKROGRAM/ ML
  22. LYRICA [Concomitant]
  23. KALEORID [Concomitant]
  24. SOBRIL [Concomitant]

REACTIONS (1)
  - HYPOTENSION [None]
